FAERS Safety Report 7533486-4 (Version None)
Quarter: 2011Q2

REPORT INFORMATION
  Report Type: 
  Country: None (occurrence: None)
  Receive Date: 20110608
  Receipt Date: 20060106
  Transmission Date: 20111010
  Serious: Yes (Death, Hospitalization, Disabling)
  Sender: FDA-Public Use
  Company Number: PHHO2005IN04609

PATIENT
  Sex: Male

DRUGS (1)
  1. GLEEVEC [Suspect]
     Indication: CHRONIC MYELOID LEUKAEMIA
     Dosage: 600 MG, QD
     Route: 048
     Dates: start: 20040727, end: 20050309

REACTIONS (6)
  - DEATH [None]
  - DIZZINESS [None]
  - HEADACHE [None]
  - BLAST CRISIS IN MYELOGENOUS LEUKAEMIA [None]
  - NEOPLASM MALIGNANT [None]
  - VOMITING [None]
